FAERS Safety Report 21275475 (Version 1)
Quarter: 2022Q3

REPORT INFORMATION
  Report Type: Spontaneous
  Country: US (occurrence: None)
  Receive Date: 20220831
  Receipt Date: 20220831
  Transmission Date: 20221027
  Serious: No
  Sender: FDA-Public Use
  Company Number: None

PATIENT
  Age: 70 Year
  Sex: Female
  Weight: 80.29 kg

DRUGS (7)
  1. BUSPIRONE HYDROCHLORIDE [Suspect]
     Active Substance: BUSPIRONE HYDROCHLORIDE
     Indication: Anxiety
     Dosage: FREQUENCY : TWICE A DAY;?
     Route: 048
     Dates: start: 202111
  2. BUPROPION [Concomitant]
     Active Substance: BUPROPION
  3. ELIQUIS [Concomitant]
     Active Substance: APIXABAN
  4. LOSARTIN POTASSIUM [Concomitant]
  5. LOPERAMIDE [Concomitant]
     Active Substance: LOPERAMIDE
  6. BUTALBITOL/ACETAMINOPHEN [Concomitant]
  7. VITAMIN C GUMMIES [Concomitant]

REACTIONS (2)
  - Foreign body in throat [None]
  - Product shape issue [None]

NARRATIVE: CASE EVENT DATE: 20220821
